FAERS Safety Report 10676097 (Version 5)
Quarter: 2015Q1

REPORT INFORMATION
  Report Type: Spontaneous
  Country: JP (occurrence: JP)
  Receive Date: 20141226
  Receipt Date: 20150219
  Transmission Date: 20150720
  Serious: Yes (Death, Life-Threatening, Other)
  Sender: FDA-Public Use
  Company Number: JP-ROCHE-1512208

PATIENT
  Age: 56 Year
  Sex: Female

DRUGS (4)
  1. ACTEMRA [Suspect]
     Active Substance: TOCILIZUMAB
     Indication: SYSTEMIC INFLAMMATORY RESPONSE SYNDROME
     Route: 041
     Dates: start: 20140318, end: 20140318
  2. PREDNISOLONE. [Concomitant]
     Active Substance: PREDNISOLONE
     Indication: SYSTEMIC INFLAMMATORY RESPONSE SYNDROME
     Route: 065
     Dates: start: 2014
  3. METHYLPREDNISOLONE SODIUM SUCCINATE. [Suspect]
     Active Substance: METHYLPREDNISOLONE SODIUM SUCCINATE
     Indication: SYSTEMIC INFLAMMATORY RESPONSE SYNDROME
     Route: 041
     Dates: start: 2014, end: 2014
  4. ACTEMRA [Suspect]
     Active Substance: TOCILIZUMAB
     Indication: SYSTEMIC INFLAMMATORY RESPONSE SYNDROME
     Route: 041
     Dates: start: 20140328, end: 20140328

REACTIONS (6)
  - Cardio-respiratory arrest [Unknown]
  - Cerebral infarction [Unknown]
  - Product use issue [Unknown]
  - Melaena [Fatal]
  - Gastrointestinal haemorrhage [Fatal]
  - Systemic inflammatory response syndrome [Fatal]
